FAERS Safety Report 5164732-2 (Version None)
Quarter: 2006Q4

REPORT INFORMATION
  Report Type: 
  Country: None (occurrence: None)
  Receive Date: 20061205
  Receipt Date: 19990609
  Transmission Date: 20070319
  Serious: Yes (Hospitalization)
  Sender: FDA-Public Use
  Company Number: FR-GLAXOSMITHKLINE-B0067663A

PATIENT
  Age: 1 Day
  Sex: Female
  Weight: 2.2 kg

DRUGS (21)
  1. EPIVIR [Suspect]
     Dosage: .5ML TWICE PER DAY
     Route: 048
     Dates: start: 19980320, end: 19980428
  2. RETROVIR [Suspect]
     Dosage: 5ML THREE TIMES PER DAY
     Route: 048
     Dates: start: 19980320, end: 19980428
  3. FERROSTRANE [Concomitant]
  4. FOLIC ACID [Concomitant]
  5. NYSTATINE [Concomitant]
  6. MICONAZOLE [Concomitant]
  7. ERGOCALCIFEROL [Concomitant]
  8. SODIUM FLUORIDE [Concomitant]
  9. ZIDOVUDINE [Suspect]
     Indication: HIV INFECTION
     Dates: start: 19980201
  10. LAMIVUDINE [Suspect]
     Indication: HIV INFECTION
     Dates: start: 19980201
  11. CORTICOSTEROID [Concomitant]
     Route: 042
     Dates: start: 19990306
  12. FORTUM [Concomitant]
     Dates: start: 19990319
  13. BCG [Concomitant]
     Dates: start: 19980604
  14. WHOOPING COUGH VACCINE [Concomitant]
  15. HEPATITIS B VACCINE [Concomitant]
  16. IRON [Concomitant]
     Route: 065
  17. VITAMINS [Concomitant]
     Route: 065
  18. HICONCIL [Concomitant]
     Route: 065
  19. VENTOLIN [Concomitant]
     Route: 065
  20. SEREVENT [Concomitant]
     Route: 065
  21. PULMICORT [Concomitant]
     Route: 065

REACTIONS (19)
  - ALANINE AMINOTRANSFERASE INCREASED [None]
  - ANAEMIA [None]
  - BILIRUBIN CONJUGATED INCREASED [None]
  - BLOOD BILIRUBIN INCREASED [None]
  - BLOOD CREATINE PHOSPHOKINASE INCREASED [None]
  - BLOOD CREATININE INCREASED [None]
  - BLOOD LACTATE DEHYDROGENASE INCREASED [None]
  - BLOOD LACTIC ACID INCREASED [None]
  - BRONCHIOLITIS [None]
  - CULTURE POSITIVE [None]
  - EATING DISORDER [None]
  - HYPERKALAEMIA [None]
  - LIPASE INCREASED [None]
  - NEUTROPENIA [None]
  - ORAL CANDIDIASIS [None]
  - PREMATURE RUPTURE OF MEMBRANES [None]
  - RESTLESSNESS [None]
  - SPEECH DISORDER [None]
  - UMBILICAL HERNIA [None]
